FAERS Safety Report 4309622-X (Version None)
Quarter: 2004Q1

REPORT INFORMATION
  Report Type: 
  Country: None (occurrence: None)
  Receive Date: 20040302
  Receipt Date: 20040218
  Transmission Date: 20041129
  Serious: Yes (Death, Other)
  Sender: FDA-Public Use
  Company Number: WAES 0402NLD00021

PATIENT
  Age: 54 Year
  Sex: Female

DRUGS (6)
  1. AMPHOTERICIN B [Concomitant]
     Indication: INFECTION
  2. CASPOFUNGIN ACETATE [Suspect]
     Indication: FUNGAL INFECTION
  3. CIPROFLOXACIN [Concomitant]
     Indication: INFECTION
  4. FLUCONAZOLE [Concomitant]
  5. PIPERACILLIN [Concomitant]
  6. TAZOBACTAM [Concomitant]

REACTIONS (6)
  - ABDOMINAL ADHESIONS [None]
  - BRONCHOPULMONARY ASPERGILLOSIS [None]
  - MULTI-ORGAN FAILURE [None]
  - MYOCARDIAL INFARCTION [None]
  - PULMONARY NECROSIS [None]
  - SEPTIC SHOCK [None]
